FAERS Safety Report 5409649-0 (Version None)
Quarter: 2007Q3

REPORT INFORMATION
  Report Type: 
  Country: None (occurrence: None)
  Receive Date: 20070807
  Receipt Date: 20070807
  Transmission Date: 20080115
  Serious: Yes (Other)
  Sender: FDA-Public Use
  Company Number: None

PATIENT
  Age: 83 Year
  Sex: Female
  Weight: 40.8237 kg

DRUGS (5)
  1. MEGACE [Suspect]
     Indication: ANOREXIA
     Dosage: 3 TIMES A DAY PO
     Route: 048
     Dates: start: 20070524, end: 20070803
  2. MEGACE [Suspect]
     Indication: WEIGHT DECREASED
     Dosage: 3 TIMES A DAY PO
     Route: 048
     Dates: start: 20070524, end: 20070803
  3. RISPERDAL [Concomitant]
  4. NAMENDA [Concomitant]
  5. ZOLOFT [Concomitant]

REACTIONS (7)
  - ASTHENIA [None]
  - BALANCE DISORDER [None]
  - DIZZINESS [None]
  - FATIGUE [None]
  - LETHARGY [None]
  - MUSCULAR WEAKNESS [None]
  - URINARY INCONTINENCE [None]
